FAERS Safety Report 19643341 (Version 1)
Quarter: 2021Q3

REPORT INFORMATION
  Report Type: Spontaneous
  Country: DE (occurrence: DE)
  Receive Date: 20210730
  Receipt Date: 20210730
  Transmission Date: 20211014
  Serious: Yes (Other)
  Sender: FDA-Public Use
  Company Number: DE-INCYTE CORPORATION-2021IN006774

PATIENT

DRUGS (2)
  1. JAKAVI [Suspect]
     Active Substance: RUXOLITINIB
     Indication: MYELOPROLIFERATIVE NEOPLASM
     Dosage: 5 MG, BID
     Route: 065
     Dates: start: 2017
  2. JAKAVI [Suspect]
     Active Substance: RUXOLITINIB
     Dosage: 5 MG (DAILY)
     Route: 065

REACTIONS (8)
  - Splenomegaly [Unknown]
  - Pulmonary embolism [Unknown]
  - Splenic infarction [Unknown]
  - Thrombocytopenia [Unknown]
  - Pulmonary hypertension [Unknown]
  - Gastric varices [Unknown]
  - Antinuclear antibody positive [Unknown]
  - Gastritis [Unknown]

NARRATIVE: CASE EVENT DATE: 202012
